FAERS Safety Report 13176438 (Version 1)
Quarter: 2017Q1

REPORT INFORMATION
  Report Type: Spontaneous
  Country: US (occurrence: US)
  Receive Date: 20170201
  Receipt Date: 20170201
  Transmission Date: 20170428
  Serious: Yes (Hospitalization)
  Sender: FDA-Public Use
  Company Number: US-PFIZER INC-2017044648

PATIENT
  Age: 53 Year
  Sex: Female

DRUGS (8)
  1. VITAMIN D [Concomitant]
     Active Substance: CHOLECALCIFEROL
  2. DOXEPIN HCL [Suspect]
     Active Substance: DOXEPIN HYDROCHLORIDE
     Indication: INSOMNIA
  3. XYREM [Suspect]
     Active Substance: SODIUM OXYBATE
     Indication: FIBROMYALGIA
     Dosage: 6 G, DAILY, 3 GM 2 IN 1D
     Route: 048
     Dates: start: 20051125
  4. ZOLPIDEM TARTRATE. [Suspect]
     Active Substance: ZOLPIDEM TARTRATE
     Indication: MIDDLE INSOMNIA
     Dosage: 10 MG, 1X/DAY, QHS
  5. ZALEPLON. [Concomitant]
     Active Substance: ZALEPLON
  6. DIPHENHYDRAMINE HCL [Suspect]
     Active Substance: DIPHENHYDRAMINE HYDROCHLORIDE
  7. IODINE. [Concomitant]
     Active Substance: IODINE
  8. LEVOTHYROXINE SODIUM. [Concomitant]
     Active Substance: LEVOTHYROXINE SODIUM

REACTIONS (9)
  - Apathy [Unknown]
  - Weight decreased [Unknown]
  - Somnambulism [Unknown]
  - Spinal disorder [Unknown]
  - Depression [Unknown]
  - Emotional poverty [Unknown]
  - Insomnia [Unknown]
  - Somnolence [Unknown]
  - Sedation [Unknown]
